FAERS Safety Report 4377651-6 (Version None)
Quarter: 2004Q2

REPORT INFORMATION
  Report Type: 
  Country: None (occurrence: None)
  Receive Date: 20040602
  Receipt Date: 20031001
  Transmission Date: 20050107
  Serious: Yes (Other)
  Sender: FDA-Public Use
  Company Number: NSADSS2003022582

PATIENT
  Age: 54 Year
  Sex: Male
  Weight: 104.3273 kg

DRUGS (1)
  1. PROPULSID [Suspect]

REACTIONS (1)
  - CHEST PAIN [None]
